FAERS Safety Report 6855828-5 (Version None)
Quarter: 2010Q3

REPORT INFORMATION
  Report Type: 
  Country: None (occurrence: None)
  Receive Date: 20100715
  Receipt Date: 20100715
  Transmission Date: 20110219
  Serious: Yes (Life-Threatening, Hospitalization)
  Sender: FDA-Public Use
  Company Number: None

PATIENT
  Age: 63 Year
  Sex: Female
  Weight: 59.4212 kg

DRUGS (4)
  1. ACTOS [Suspect]
     Indication: TYPE 2 DIABETES MELLITUS
     Dosage: 1 TABLET 1X DAILY
     Dates: start: 20100101, end: 20100501
  2. TYLENOL W/ CODEINE NO. 3 [Concomitant]
  3. CYMBALTA [Concomitant]
  4. TRAZODONE [Concomitant]

REACTIONS (13)
  - ANAEMIA [None]
  - ANXIETY [None]
  - DEPRESSION [None]
  - DIZZINESS [None]
  - DYSPNOEA [None]
  - FATIGUE [None]
  - FEAR [None]
  - FLUID RETENTION [None]
  - HEART RATE INCREASED [None]
  - NAUSEA [None]
  - PAIN [None]
  - TENSION HEADACHE [None]
  - WEIGHT INCREASED [None]
